FAERS Safety Report 9171659 (Version 9)
Quarter: 2013Q4

REPORT INFORMATION
  Report Type: Report from Study
  Country: DE (occurrence: DE)
  Receive Date: 20130319
  Receipt Date: 20131011
  Transmission Date: 20140711
  Serious: Yes (Hospitalization)
  Sender: FDA-Public Use
  Company Number: PHHY2013DE026081

PATIENT
  Sex: Female
  Weight: 49 kg

DRUGS (14)
  1. AFINITOR [Suspect]
     Indication: BREAST CANCER METASTATIC
     Dosage: 10 MG, QD
     Route: 048
     Dates: start: 20130121, end: 20130530
  2. EXEMESTANE [Concomitant]
     Indication: BREAST CANCER METASTATIC
     Dosage: 25 MG, QD
     Route: 048
     Dates: start: 20130121, end: 20130530
  3. L-THYROXINE [Concomitant]
     Dosage: 100 UG, DAILY
  4. PANTOPRAZOLE [Concomitant]
     Dosage: 20 MG, QD
  5. RAMIPRIL [Concomitant]
     Dosage: 5 MG, QD
  6. FLORADIX [Concomitant]
     Dosage: 10 MG
  7. BISOPROLOL [Concomitant]
     Dosage: 10 MG, QD
  8. VITAMIN D [Concomitant]
  9. XGEVA [Concomitant]
     Dosage: 120 MG, EVERY 4 WEEKS
     Dates: start: 20130118
  10. AVASTIN [Concomitant]
     Dosage: 6 MG/KG (BODY WEIGHT), EVERY 3 WEEKS
     Dates: start: 20070723
  11. CHEMOTHERAPEUTICS [Concomitant]
  12. ANTIBIOTICS [Concomitant]
  13. SIMVABETA [Concomitant]
     Dosage: 20 MG, QD
  14. RADIATION THERAPY [Concomitant]

REACTIONS (9)
  - General physical health deterioration [Recovered/Resolved]
  - Diarrhoea [Recovered/Resolved]
  - Abdominal discomfort [Recovered/Resolved]
  - Pneumonitis [Recovered/Resolved]
  - Chest X-ray abnormal [Not Recovered/Not Resolved]
  - Cough [Recovered/Resolved]
  - Chest pain [Recovered/Resolved]
  - Arthralgia [Recovered/Resolved]
  - Anaemia [Recovered/Resolved]
